FAERS Safety Report 17228470 (Version 1)
Quarter: 2020Q1

REPORT INFORMATION
  Report Type: Spontaneous
  Country: US (occurrence: US)
  Receive Date: 20200103
  Receipt Date: 20200103
  Transmission Date: 20200409
  Serious: Yes (Hospitalization, Other)
  Sender: FDA-Public Use
  Company Number: US-STRIDES ARCOLAB LIMITED-2019SP013514

PATIENT
  Age: 46 Year
  Sex: Male

DRUGS (9)
  1. TRIAMCINOLONE ACETONIDE. [Suspect]
     Active Substance: TRIAMCINOLONE ACETONIDE
     Dosage: UNK, SEVERAL STEROID TAPERS
     Route: 065
  2. PREDNISOLONE. [Suspect]
     Active Substance: PREDNISOLONE
     Dosage: UNK, SEVERAL STEROID TAPERS
     Route: 065
  3. MYCOPHENOLATE MOFETIL. [Suspect]
     Active Substance: MYCOPHENOLATE MOFETIL
     Indication: PEMPHIGUS
     Dosage: UNK
     Route: 065
  4. TRIAMCINOLONE ACETONIDE. [Suspect]
     Active Substance: TRIAMCINOLONE ACETONIDE
     Indication: PEMPHIGUS
     Dosage: UNK (OINTMENT)
     Route: 061
  5. PREDNISOLONE. [Suspect]
     Active Substance: PREDNISOLONE
     Indication: PEMPHIGUS
     Dosage: 60 MILLIGRAM PER DAY
     Route: 048
  6. MUPIROCIN. [Concomitant]
     Active Substance: MUPIROCIN
     Indication: PEMPHIGUS
     Dosage: UNK
     Route: 065
  7. PREDNISOLONE. [Suspect]
     Active Substance: PREDNISOLONE
     Dosage: INCREASED TO 80 MG PER DAY
     Route: 065
  8. PREDNISOLONE. [Suspect]
     Active Substance: PREDNISOLONE
     Dosage: REDUCED TO 60 MG PER DAY
     Route: 065
  9. PREDNISOLONE. [Suspect]
     Active Substance: PREDNISOLONE
     Dosage: UNK, DOSE INCREASED
     Route: 065

REACTIONS (4)
  - Psychotic disorder [Recovered/Resolved]
  - Drug ineffective [Unknown]
  - Off label use [Unknown]
  - Hallucination, auditory [Recovered/Resolved]
